FAERS Safety Report 9734230 (Version 1)
Quarter: 2013Q4

REPORT INFORMATION
  Report Type: Spontaneous
  Country: US (occurrence: US)
  Receive Date: 20131205
  Receipt Date: 20131205
  Transmission Date: 20140711
  Serious: No
  Sender: FDA-Public Use
  Company Number: US-TEVA-445056USA

PATIENT
  Age: 68 Year
  Sex: Male
  Weight: 97.61 kg

DRUGS (1)
  1. PROAIR HFA [Suspect]
     Indication: DYSPNOEA
     Dosage: 2 PUFFFS EVERY 6 HRS
     Route: 055

REACTIONS (2)
  - Medication error [Recovered/Resolved]
  - Dyspnoea [Recovered/Resolved]
